FAERS Safety Report 17166641 (Version 1)
Quarter: 2019Q4

REPORT INFORMATION
  Report Type: Spontaneous
  Country: US (occurrence: US)
  Receive Date: 20191217
  Receipt Date: 20191217
  Transmission Date: 20200122
  Serious: Yes (Hospitalization, Other)
  Sender: FDA-Public Use
  Company Number: US-009507513-1912USA005943

PATIENT
  Sex: Female

DRUGS (1)
  1. KEYTRUDA [Suspect]
     Active Substance: PEMBROLIZUMAB
     Dosage: UNK
     Dates: start: 2015

REACTIONS (5)
  - Inflammation [Unknown]
  - Dysphagia [Unknown]
  - Paralysis [Unknown]
  - Coma [Recovered/Resolved]
  - Nephropathy toxic [Unknown]
